FAERS Safety Report 23743071 (Version 1)
Quarter: 2024Q2

REPORT INFORMATION
  Report Type: Spontaneous
  Country: US (occurrence: None)
  Receive Date: 20240415
  Receipt Date: 20240415
  Transmission Date: 20240716
  Serious: No
  Sender: FDA-Public Use
  Company Number: 2024A087669

PATIENT
  Age: 1036 Month
  Sex: Female

DRUGS (1)
  1. FARXIGA [Suspect]
     Active Substance: DAPAGLIFLOZIN PROPANEDIOL
     Indication: Type 2 diabetes mellitus
     Route: 048
     Dates: start: 202402, end: 202403

REACTIONS (4)
  - Vulvovaginal pain [Unknown]
  - Vulvovaginal discomfort [Unknown]
  - Mass [Unknown]
  - Feeling hot [Unknown]

NARRATIVE: CASE EVENT DATE: 20240401
